FAERS Safety Report 7828167-3 (Version None)
Quarter: 2011Q4

REPORT INFORMATION
  Report Type: 
  Country: None (occurrence: None)
  Receive Date: 20111020
  Receipt Date: 20111012
  Transmission Date: 20120403
  Serious: Yes (Other)
  Sender: FDA-Public Use
  Company Number: JP-BAXTER-2011BH032917

PATIENT
  Age: 46 Year

DRUGS (1)
  1. CYCLOPHOSPHAMIDE [Suspect]
     Indication: GOODPASTURE'S SYNDROME
     Route: 065

REACTIONS (1)
  - MYELODYSPLASTIC SYNDROME [None]
